FAERS Safety Report 9014332 (Version 4)
Quarter: 2013Q1

REPORT INFORMATION
  Report Type: Spontaneous
  Country: US (occurrence: US)
  Receive Date: 20130115
  Receipt Date: 20130218
  Transmission Date: 20140127
  Serious: Yes (Hospitalization, Other)
  Sender: FDA-Public Use
  Company Number: US-AMGEN-USASP2013002003

PATIENT
  Age: 30 Year
  Sex: Male
  Weight: 74.29 kg

DRUGS (6)
  1. EPOGEN [Suspect]
     Indication: NEPHROGENIC ANAEMIA
     Dosage: 3500 UNIT, 2 TIMES/WK
     Dates: start: 201211
  2. EPOGEN [Suspect]
     Indication: RENAL FAILURE CHRONIC
  3. RENAGEL                            /01459901/ [Concomitant]
     Dosage: 800 MG, TID WITH MEALS
     Route: 048
  4. DOCUSATE SODIUM [Concomitant]
     Dosage: 50 MG, BID
     Route: 048
  5. ATENOLOL [Concomitant]
     Dosage: 50 MG, QD
  6. MICARDIS [Concomitant]
     Dosage: 80 MG, QD
     Route: 048

REACTIONS (15)
  - Hospitalisation [Not Recovered/Not Resolved]
  - Aplasia pure red cell [Not Recovered/Not Resolved]
  - Anti-erythropoietin antibody positive [Not Recovered/Not Resolved]
  - Neutralising antibodies positive [Not Recovered/Not Resolved]
  - Haemoglobin abnormal [Not Recovered/Not Resolved]
  - Bone marrow failure [Not Recovered/Not Resolved]
  - Cytomegalovirus test positive [Not Recovered/Not Resolved]
  - Platelet count abnormal [Not Recovered/Not Resolved]
  - White blood cell disorder [Not Recovered/Not Resolved]
  - Flushing [Not Recovered/Not Resolved]
  - Asthenia [Not Recovered/Not Resolved]
  - Feeling hot [Not Recovered/Not Resolved]
  - Red blood cell sedimentation rate increased [Not Recovered/Not Resolved]
  - Oedema peripheral [Not Recovered/Not Resolved]
  - Weight decreased [Not Recovered/Not Resolved]
